FAERS Safety Report 12464042 (Version 1)
Quarter: 2016Q2

REPORT INFORMATION
  Report Type: Spontaneous
  Country: US (occurrence: None)
  Receive Date: 20160613
  Receipt Date: 20160613
  Transmission Date: 20160815
  Serious: Yes (Hospitalization, Disabling, Other)
  Sender: FDA-Public Use
  Company Number: None

PATIENT
  Age: 65 Year
  Sex: Male
  Weight: 92.99 kg

DRUGS (4)
  1. TRAMADOL. [Concomitant]
     Active Substance: TRAMADOL
  2. MELOXICAM. [Concomitant]
     Active Substance: MELOXICAM
  3. LYRICA [Concomitant]
     Active Substance: PREGABALIN
  4. CIPROFLOXIN [Suspect]
     Active Substance: CIPROFLOXACIN
     Indication: INFECTION
     Route: 048
     Dates: start: 20120101

REACTIONS (4)
  - Paraesthesia [None]
  - Muscular weakness [None]
  - Hypoaesthesia [None]
  - Burning sensation [None]
